FAERS Safety Report 4710251-4 (Version None)
Quarter: 2005Q3

REPORT INFORMATION
  Report Type: 
  Country: None (occurrence: None)
  Receive Date: 20050707
  Receipt Date: 20050627
  Transmission Date: 20060218
  Serious: Yes (Other)
  Sender: FDA-Public Use
  Company Number: 2005093446

PATIENT
  Age: 73 Year
  Sex: Male
  Weight: 74.8435 kg

DRUGS (3)
  1. INSPRA [Suspect]
     Indication: CARDIAC FAILURE CONGESTIVE
     Dosage: 50 MG (50 MG, DAILY INTERAL: EVERY DAY), ORAL
     Route: 048
     Dates: start: 20050619
  2. LASIX [Concomitant]
  3. DEMADEX [Concomitant]

REACTIONS (4)
  - ASCITES [None]
  - FLUID OVERLOAD [None]
  - OEDEMA PERIPHERAL [None]
  - WEIGHT INCREASED [None]
